FAERS Safety Report 5396031-8 (Version None)
Quarter: 2007Q3

REPORT INFORMATION
  Report Type: 
  Country: None (occurrence: None)
  Receive Date: 20070724
  Receipt Date: 20070712
  Transmission Date: 20080115
  Serious: Yes (Other)
  Sender: FDA-Public Use
  Company Number: US-PFIZER INC-2007058581

PATIENT
  Sex: Female
  Weight: 86.2 kg

DRUGS (11)
  1. LYRICA [Suspect]
     Indication: PAIN IN EXTREMITY
  2. LYRICA [Suspect]
  3. LEXAPRO [Concomitant]
  4. ZYRTEC [Concomitant]
  5. CLONIDINE [Concomitant]
  6. SEROQUEL [Concomitant]
  7. COREG [Concomitant]
  8. AMLODIPINE [Concomitant]
  9. BENICAR [Concomitant]
  10. LIPITOR [Concomitant]
  11. ALLEGRA [Concomitant]

REACTIONS (2)
  - DEAFNESS [None]
  - PAIN [None]
